FAERS Safety Report 5503883-7 (Version None)
Quarter: 2007Q4

REPORT INFORMATION
  Report Type: 
  Country: None (occurrence: None)
  Receive Date: 20071030
  Receipt Date: 20071030
  Transmission Date: 20080405
  Serious: Yes (Hospitalization)
  Sender: FDA-Public Use
  Company Number: None

PATIENT
  Sex: Female
  Weight: 65.7716 kg

DRUGS (1)
  1. TINDAMAX [Suspect]
     Indication: VAGINITIS BACTERIAL
     Dosage: 2GRAMS - 4 TABLETS -500MG-  DAILY FOR 2DAYS  PO
     Route: 048
     Dates: start: 20071026, end: 20071027

REACTIONS (2)
  - HYPOAESTHESIA [None]
  - PARAESTHESIA [None]
